FAERS Safety Report 7479174-4 (Version None)
Quarter: 2011Q2

REPORT INFORMATION
  Report Type: 
  Country: None (occurrence: None)
  Receive Date: 20110513
  Receipt Date: 20110503
  Transmission Date: 20111010
  Serious: Yes (Other)
  Sender: FDA-Public Use
  Company Number: GB-TEVA-280493ISR

PATIENT
  Age: 23 Year
  Sex: Female

DRUGS (4)
  1. METFORMIN HCL [Suspect]
  2. SIMVASTATIN [Suspect]
  3. ORAL CONTRACEPTIVE NOS [Suspect]
  4. INSULIN [Suspect]

REACTIONS (2)
  - DIABETIC KETOACIDOSIS [None]
  - BLINDNESS [None]
